FAERS Safety Report 6673318-X (Version None)
Quarter: 2010Q1

REPORT INFORMATION
  Report Type: 
  Country: None (occurrence: None)
  Receive Date: 20100329
  Receipt Date: 20090817
  Transmission Date: 20100710
  Serious: Yes (Hospitalization, Other)
  Sender: FDA-Public Use
  Company Number: 2009256175

PATIENT
  Age: 23 Year
  Sex: Female
  Weight: 54.4 kg

DRUGS (1)
  1. GEODON [Suspect]
     Indication: BIPOLAR DISORDER
     Dosage: FREQUENCY: 2X/DAY,, ORAL
     Route: 048
     Dates: start: 20090814, end: 20090815

REACTIONS (3)
  - DIZZINESS [None]
  - EXTRAPYRAMIDAL DISORDER [None]
  - FEELING ABNORMAL [None]
